FAERS Safety Report 5809008-2 (Version None)
Quarter: 2008Q3

REPORT INFORMATION
  Report Type: 
  Country: None (occurrence: None)
  Receive Date: 20080714
  Receipt Date: 20080711
  Transmission Date: 20090109
  Serious: Yes (Death)
  Sender: FDA-Public Use
  Company Number: GB-JNJFOC-20080702747

PATIENT
  Age: 29 Year
  Sex: Female

DRUGS (5)
  1. RISPERDAL [Suspect]
     Indication: SCHIZOPHRENIA
     Route: 048
  2. DISIPAL [Concomitant]
     Route: 048
  3. GALFER [Concomitant]
     Indication: IRON DEFICIENCY ANAEMIA
     Route: 065
  4. GAVISCON [Concomitant]
     Route: 048
  5. LORAZEPAM [Concomitant]
     Route: 048

REACTIONS (1)
  - ARRHYTHMIA [None]
